FAERS Safety Report 6054829-7 (Version None)
Quarter: 2009Q1

REPORT INFORMATION
  Report Type: 
  Country: None (occurrence: None)
  Receive Date: 20090128
  Receipt Date: 20090123
  Transmission Date: 20090719
  Serious: Yes (Death)
  Sender: FDA-Public Use
  Company Number: ZA-ABBOTT-09P-143-0499385-00

PATIENT
  Age: 22 Year
  Sex: Male

DRUGS (2)
  1. HUMIRA [Suspect]
     Indication: POLYARTERITIS NODOSA
     Dates: start: 20070101
  2. HUMIRA [Suspect]
     Indication: PSORIASIS

REACTIONS (2)
  - PNEUMONIA [None]
  - SYNCOPE [None]
